FAERS Safety Report 8432569-4 (Version None)
Quarter: 2012Q2

REPORT INFORMATION
  Report Type: 
  Country: None (occurrence: None)
  Receive Date: 20120607
  Receipt Date: 20120522
  Transmission Date: 20120825
  Serious: Yes (Hospitalization)
  Sender: FDA-Public Use
  Company Number: UCM201205-000049

PATIENT
  Age: 8 Year
  Sex: Female

DRUGS (4)
  1. AMPHETAMINE SULFATE [Suspect]
     Dosage: 50 MG EVERY DAY
  2. DEXTROAMPHETAMINE [Suspect]
     Dosage: 50 MG EVERY DAY
  3. CLONIDINE HCL [Suspect]
     Dosage: 0.4 MG EVERY NIGHT AT BEDTIME
  4. RISPERIDONE [Suspect]
     Dosage: 1 MG TWO TIMES A DAY

REACTIONS (9)
  - MALIGNANT HYPERTENSION [None]
  - URINE ABNORMALITY [None]
  - WITHDRAWAL SYNDROME [None]
  - DISCOMFORT [None]
  - ILEUS [None]
  - DRUG DOSE OMISSION [None]
  - GRAND MAL CONVULSION [None]
  - VIRAL INFECTION [None]
  - URINE KETONE BODY PRESENT [None]
